FAERS Safety Report 5937674-X (Version None)
Quarter: 2008Q4

REPORT INFORMATION
  Report Type: 
  Country: None (occurrence: None)
  Receive Date: 20081031
  Receipt Date: 20080529
  Transmission Date: 20090506
  Serious: No
  Sender: FDA-Public Use
  Company Number: US-BAYER-200812358BCC

PATIENT
  Age: 17 Year
  Sex: Male
  Weight: 76 kg

DRUGS (5)
  1. ALEVE (CAPLET) [Suspect]
     Indication: DRUG USE FOR UNKNOWN INDICATION
     Dosage: UNIT DOSE: 220 MG
     Dates: start: 20080527
  2. ZYPREXA [Concomitant]
  3. TRILEPTAL [Concomitant]
  4. CYMBALTA [Concomitant]
  5. VYVANSE [Concomitant]

REACTIONS (2)
  - SOMNOLENCE [None]
  - VOMITING [None]
